FAERS Safety Report 7039349-5 (Version None)
Quarter: 2010Q3

REPORT INFORMATION
  Report Type: 
  Country: None (occurrence: None)
  Receive Date: 20100913
  Receipt Date: 20100830
  Transmission Date: 20110219
  Serious: Yes (Life-Threatening, Hospitalization)
  Sender: FDA-Public Use
  Company Number: GAM-230-10-DE

PATIENT
  Age: 63 Year
  Sex: Male

DRUGS (2)
  1. OCTAGAM [Suspect]
     Indication: SECONDARY IMMUNODEFICIENCY
     Dosage: 10 G
     Route: 042
     Dates: start: 20100820, end: 20100820
  2. RINGERS SOLUTION (ELECTROLYTE SUBSTITUTION) [Concomitant]

REACTIONS (5)
  - CEREBROVASCULAR ACCIDENT [None]
  - DEPRESSED LEVEL OF CONSCIOUSNESS [None]
  - HYPERTENSIVE CRISIS [None]
  - MYDRIASIS [None]
  - PARESIS [None]
